FAERS Safety Report 5576595-1 (Version None)
Quarter: 2007Q4

REPORT INFORMATION
  Report Type: 
  Country: None (occurrence: None)
  Receive Date: 20071228
  Receipt Date: 20071221
  Transmission Date: 20080405
  Serious: Yes (Hospitalization)
  Sender: FDA-Public Use
  Company Number: US-GENENTECH-230330

PATIENT
  Sex: Male
  Weight: 88.888 kg

DRUGS (1)
  1. RITUXIMAB [Suspect]
     Indication: MULTIPLE SCLEROSIS
     Dosage: UNK, UNK
     Dates: start: 20041117

REACTIONS (1)
  - CHOLECYSTITIS ACUTE [None]
